FAERS Safety Report 9735947 (Version 1)
Quarter: 2013Q4

REPORT INFORMATION
  Report Type: Spontaneous
  Country: US (occurrence: None)
  Receive Date: 20131204
  Receipt Date: 20131204
  Transmission Date: 20140711
  Serious: Yes (Other)
  Sender: FDA-Public Use
  Company Number: ZYD-13-AE-328

PATIENT
  Sex: Female

DRUGS (5)
  1. AMLODIPINE [Suspect]
     Dosage: UNK, UNK, UNK
  2. SYNTHROID [Suspect]
     Dosage: UNK, UNK, UNK
  3. ALBUTEROL INHALER [Concomitant]
  4. UNKNOWN INHALER MEDICATION [Concomitant]
  5. MARCAINE [Concomitant]

REACTIONS (5)
  - Throat cancer [None]
  - Non-Hodgkin^s lymphoma [None]
  - Anaemia [None]
  - Productive cough [None]
  - Frustration [None]
